FAERS Safety Report 15763911 (Version 3)
Quarter: 2025Q3

REPORT INFORMATION
  Report Type: Spontaneous
  Country: EU (occurrence: EU)
  Receive Date: 20181227
  Receipt Date: 20250925
  Transmission Date: 20251021
  Serious: Yes (Other)
  Sender: TEVA
  Company Number: None

PATIENT
  Age: 27 Year
  Sex: Female
  Weight: 94 kg

DRUGS (4)
  1. DOXEPIN [Suspect]
     Active Substance: DOXEPIN
     Indication: Panic disorder
     Route: 048
     Dates: start: 20180511
  2. DOXEPIN [Suspect]
     Active Substance: DOXEPIN
     Indication: Panic disorder
     Route: 048
     Dates: start: 20181114
  3. DOXEPIN [Suspect]
     Active Substance: DOXEPIN
     Indication: Panic disorder
     Route: 048
     Dates: start: 20090408
  4. DOXEPIN [Suspect]
     Active Substance: DOXEPIN
     Indication: Panic disorder
     Route: 048
     Dates: end: 202007

REACTIONS (14)
  - Papilloedema [Recovered/Resolved]
  - Photophobia [Recovering/Resolving]
  - Foreign body sensation in eyes [Recovering/Resolving]
  - Eye pain [Recovered/Resolved]
  - Insomnia [Unknown]
  - Tinnitus [Unknown]
  - Headache [Unknown]
  - Restlessness [Unknown]
  - Visual impairment [Unknown]
  - Dry eye [Unknown]
  - Optic nerve disorder [Unknown]
  - Eye irritation [Unknown]
  - Vision blurred [Unknown]
  - Idiopathic intracranial hypertension [Recovered/Resolved with Sequelae]

NARRATIVE: CASE EVENT DATE: 20180101
